FAERS Safety Report 9515809 (Version 1)
Quarter: 2013Q1

REPORT INFORMATION
  Report Type: Spontaneous
  Country: US (occurrence: None)
  Receive Date: 20130305
  Receipt Date: 20130305
  Transmission Date: 20140127
  Serious: Yes (Other)
  Sender: FDA-Public Use
  Company Number: 163-21880-12120895

PATIENT
  Sex: 0

DRUGS (3)
  1. REVLIMID (LENALIDOMIDE) (CAPSULES) [Suspect]
     Indication: PLASMA CELL MYELOMA
     Route: 048
  2. CARFILZOMIB (CARFILZOMIB) (INJECTION) [Suspect]
     Dosage: DAYS 1,2,8,9,15,16
     Route: 042
  3. DEXAMETHASONE (DEXAMETHASONE) (INJECTION) (DEXAMETHASONE) [Suspect]
     Dosage: DAYS 1,2,8,9,15,16
     Route: 042

REACTIONS (8)
  - Hypophosphataemia [None]
  - Alanine aminotransferase increased [None]
  - Cardiac failure congestive [None]
  - Anxiety [None]
  - Syncope [None]
  - Rash [None]
  - Lymphopenia [None]
  - Thrombocytopenia [None]
